FAERS Safety Report 4920777-6 (Version None)
Quarter: 2006Q1

REPORT INFORMATION
  Report Type: 
  Country: None (occurrence: None)
  Receive Date: 20060217
  Receipt Date: 20060202
  Transmission Date: 20060701
  Serious: Yes (Other)
  Sender: FDA-Public Use
  Company Number: DEU-2006-0001973

PATIENT
  Age: 88 Year
  Sex: Female

DRUGS (2)
  1. OXYCODONE HCL [Suspect]
     Dosage: 40 M G, DAILY, ORAL; 20 MG, BID, ORAL
     Route: 048
  2. ANTIDEPRESSANTS [Suspect]

REACTIONS (3)
  - BLOOD PRESSURE INCREASED [None]
  - DRUG INTERACTION [None]
  - SEROTONIN SYNDROME [None]
